FAERS Safety Report 10218730 (Version 1)
Quarter: 2014Q1

REPORT INFORMATION
  Report Type: Spontaneous
  Country: US (occurrence: None)
  Receive Date: 20140306
  Receipt Date: 20140306
  Transmission Date: 20141002
  Serious: Yes (Hospitalization, Disabling)
  Sender: FDA-Public Use
  Company Number: 163-21880-13054553

PATIENT
  Age: 72 Year
  Sex: Male

DRUGS (6)
  1. REVLIMID (LENALIDOMIDE) (25 MILLIGRAM, CAPSULES) [Suspect]
     Indication: PLASMA CELL MYELOMA
     Dosage: 25 MG, 21 IN 28 D, PO
     Route: 048
     Dates: start: 20130315, end: 20130517
  2. BORTEZOMIB (BORTEZOMIB) (UNKNOWN) [Suspect]
     Indication: PLASMA CELL MYELOMA
     Dosage: DAYS 1, 4, 8, 11, SC
     Route: 058
     Dates: start: 20130315, end: 20130507
  3. DEXAMETHASONE (DEXAMETHASONE) [Concomitant]
  4. ACYCLOVIR (ACICLOVIR) [Concomitant]
  5. ASA (ACETYLSALICYLIC ACID) [Concomitant]
  6. JALYN (DUTAS-T) [Concomitant]

REACTIONS (2)
  - Neuropathy peripheral [None]
  - Bone pain [None]
